FAERS Safety Report 24901236 (Version 1)
Quarter: 2025Q1

REPORT INFORMATION
  Report Type: Spontaneous
  Country: US (occurrence: US)
  Receive Date: 20250129
  Receipt Date: 20250129
  Transmission Date: 20250409
  Serious: No
  Sender: MERCK
  Company Number: US-009507513-2501USA009530

PATIENT
  Age: 56 Year
  Sex: Male

DRUGS (4)
  1. PRIMAXIN IV [Suspect]
     Active Substance: CILASTATIN SODIUM\IMIPENEM
     Indication: Localised infection
     Dates: start: 20241113
  2. LINEZOLID [Suspect]
     Active Substance: LINEZOLID
     Indication: Localised infection
     Dosage: 600 MILLIGRAM, QD
     Dates: start: 20241113
  3. AZITHROMYCIN [Suspect]
     Active Substance: AZITHROMYCIN
     Indication: Localised infection
     Dosage: 500 MILLIGRAM, QD
     Dates: start: 20241113
  4. AMIKACIN [Suspect]
     Active Substance: AMIKACIN
     Indication: Localised infection
     Route: 042
     Dates: start: 20241113

REACTIONS (2)
  - Drug intolerance [Unknown]
  - Drug resistance [Unknown]

NARRATIVE: CASE EVENT DATE: 20241101
